FAERS Safety Report 10358711 (Version 2)
Quarter: 2014Q3

REPORT INFORMATION
  Report Type: Spontaneous
  Country: DE (occurrence: DE)
  Receive Date: 20140804
  Receipt Date: 20140807
  Transmission Date: 20150326
  Serious: Yes (Other)
  Sender: FDA-Public Use
  Company Number: DE-ROCHE-1442503

PATIENT
  Sex: Male

DRUGS (1)
  1. ERIVEDGE [Suspect]
     Active Substance: VISMODEGIB
     Indication: BASAL CELL CARCINOMA
     Route: 048
     Dates: start: 201406

REACTIONS (4)
  - Suicidal ideation [Not Recovered/Not Resolved]
  - Muscle spasms [Unknown]
  - Ageusia [Unknown]
  - Dry throat [Unknown]

NARRATIVE: CASE EVENT DATE: 201407
